FAERS Safety Report 9677329 (Version 1)
Quarter: 2013Q4

REPORT INFORMATION
  Report Type: Spontaneous
  Country: US (occurrence: US)
  Receive Date: 20131108
  Receipt Date: 20131108
  Transmission Date: 20140711
  Serious: No
  Sender: FDA-Public Use
  Company Number: US-PFIZER INC-2013317983

PATIENT
  Age: 53 Year
  Sex: Female
  Weight: 78.91 kg

DRUGS (6)
  1. LYRICA [Suspect]
     Indication: FIBROMYALGIA
     Dosage: 75 MG, 2X/DAY
     Route: 048
  2. LYRICA [Suspect]
     Indication: SPINAL CORD DISORDER
  3. LYRICA [Suspect]
     Indication: NEUROPATHY PERIPHERAL
  4. NEURONTIN [Suspect]
     Indication: NEUROPATHY PERIPHERAL
     Dosage: UNK
  5. NEURONTIN [Suspect]
     Indication: SPINAL CORD DISORDER
  6. SEROQUEL XR [Concomitant]
     Dosage: 50 MG, DAILY

REACTIONS (2)
  - Spinal disorder [Unknown]
  - Drug ineffective [Unknown]
